FAERS Safety Report 11320734 (Version 1)
Quarter: 2015Q3

REPORT INFORMATION
  Report Type: Spontaneous
  Country: None (occurrence: None)
  Receive Date: 20150728
  Receipt Date: 20150728
  Transmission Date: 20151125
  Serious: Yes (Life-Threatening)
  Sender: FDA-Public Use
  Company Number: None

PATIENT
  Age: 55 Year
  Sex: Female
  Weight: 66.23 kg

DRUGS (6)
  1. CALCIUM WITH VIT D [Concomitant]
  2. PROBIOTICS [Concomitant]
     Active Substance: PROBIOTICS NOS
  3. FORTEO [Suspect]
     Active Substance: TERIPARATIDE
  4. ASA [Concomitant]
     Active Substance: ASPIRIN
  5. COLLAGEN [Concomitant]
     Active Substance: COLLAGEN
  6. VITAMIN [Concomitant]
     Active Substance: VITAMINS

REACTIONS (3)
  - Atrial tachycardia [None]
  - Hypertension [None]
  - Dilatation ventricular [None]

NARRATIVE: CASE EVENT DATE: 20150708
